FAERS Safety Report 21927915 (Version 1)
Quarter: 2023Q1

REPORT INFORMATION
  Report Type: Spontaneous
  Country: TN (occurrence: TN)
  Receive Date: 20230130
  Receipt Date: 20230130
  Transmission Date: 20230417
  Serious: Yes (Death, Other)
  Sender: FDA-Public Use
  Company Number: TN-BoehringerIngelheim-2023-BI-215468

PATIENT
  Age: 72 Year
  Sex: Male

DRUGS (1)
  1. OFEV [Suspect]
     Active Substance: NINTEDANIB
     Indication: Product used for unknown indication
     Route: 048
     Dates: start: 202203, end: 202301

REACTIONS (2)
  - Idiopathic pulmonary fibrosis [Fatal]
  - Respiratory distress [Fatal]

NARRATIVE: CASE EVENT DATE: 20221201
